FAERS Safety Report 12245975 (Version 1)
Quarter: 2016Q2

REPORT INFORMATION
  Report Type: Spontaneous
  Country: US (occurrence: None)
  Receive Date: 20160406
  Receipt Date: 20160406
  Transmission Date: 20160815
  Serious: Yes (Other)
  Sender: FDA-Public Use
  Company Number: None

PATIENT
  Age: 11 Year
  Sex: Male
  Weight: 48.99 kg

DRUGS (1)
  1. METHYIPHENIDATE [Suspect]
     Active Substance: METHYLPHENIDATE
     Indication: ATTENTION DEFICIT/HYPERACTIVITY DISORDER
     Dosage: 5 MG MORNING AND 1:00P. ORAL
     Route: 048
     Dates: start: 20160325, end: 20160327

REACTIONS (1)
  - Urticaria [None]

NARRATIVE: CASE EVENT DATE: 20160328
